FAERS Safety Report 8449222-3 (Version None)
Quarter: 2012Q2

REPORT INFORMATION
  Report Type: 
  Country: None (occurrence: None)
  Receive Date: 20120619
  Receipt Date: 20120608
  Transmission Date: 20120825
  Serious: Yes (Hospitalization)
  Sender: FDA-Public Use
  Company Number: JP-EISAI INC-E7389-01382-SPO-JP

PATIENT
  Sex: Female
  Weight: 52 kg

DRUGS (10)
  1. HALAVEN [Suspect]
     Indication: BREAST CANCER
     Route: 041
     Dates: start: 20110727, end: 20110824
  2. AMOBAN [Concomitant]
     Route: 048
  3. GLUFAST [Concomitant]
     Route: 048
  4. ALLEGRA [Concomitant]
     Route: 048
  5. MAGMITT [Concomitant]
     Route: 048
  6. HALAVEN [Suspect]
     Indication: METASTASES TO LYMPH NODES
     Route: 041
     Dates: start: 20110913
  7. MICARDIS [Concomitant]
     Route: 048
  8. AMLODIPINE BESYLATE [Concomitant]
     Route: 048
  9. DECADRON [Concomitant]
     Route: 048
  10. FAMOTIDINE [Concomitant]
     Route: 048

REACTIONS (2)
  - NEUTROPENIA [None]
  - UTERINE PROLAPSE [None]
